FAERS Safety Report 14242201 (Version 2)
Quarter: 2017Q4

REPORT INFORMATION
  Report Type: Report from Study
  Country: CH (occurrence: CH)
  Receive Date: 20171201
  Receipt Date: 20171225
  Transmission Date: 20180321
  Serious: Yes (Death, Hospitalization)
  Sender: FDA-Public Use
  Company Number: CH-ROCHE-2025854

PATIENT
  Age: 71 Year
  Sex: Male
  Weight: 90.2 kg

DRUGS (9)
  1. LIQUEMIN (SWITZERLAND) [Concomitant]
     Route: 042
     Dates: start: 20171113, end: 20171116
  2. ZYLORIC [Concomitant]
     Active Substance: ALLOPURINOL
     Route: 048
     Dates: start: 20171018, end: 20171113
  3. IBRUTINIB [Suspect]
     Active Substance: IBRUTINIB
     Indication: CHRONIC LYMPHOCYTIC LEUKAEMIA
     Dosage: DATE OF LAST DOSE: 03/NOV/2017
     Route: 048
     Dates: start: 20171018, end: 20171116
  4. VENETOCLAX. [Suspect]
     Active Substance: VENETOCLAX
     Indication: CHRONIC LYMPHOCYTIC LEUKAEMIA
     Dosage: DATE OF LAST DOSE 12/NOV/2017
     Route: 048
     Dates: start: 20171109, end: 20171116
  5. CONCOR [Concomitant]
     Active Substance: BISOPROLOL FUMARATE
     Indication: HYPERTENSION
     Route: 048
     Dates: end: 20171113
  6. CLEXANE [Concomitant]
     Active Substance: ENOXAPARIN SODIUM
     Route: 058
     Dates: start: 20171026, end: 20171113
  7. ROSUVASTATIN. [Concomitant]
     Active Substance: ROSUVASTATIN
     Indication: HYPERCHOLESTEROLAEMIA
  8. IRBESARTAN. [Concomitant]
     Active Substance: IRBESARTAN
     Indication: HYPERTENSION
  9. OBINUTUZUMAB. [Suspect]
     Active Substance: OBINUTUZUMAB
     Indication: CHRONIC LYMPHOCYTIC LEUKAEMIA
     Dosage: 100 MG, D1; 900 MG, D1(2); 1000 MG, D8+15, Q28D?DATE OF LAST DOSE 12/NOV/2017
     Route: 042
     Dates: start: 20171018, end: 20171116

REACTIONS (4)
  - Sepsis [Fatal]
  - Encephalitis fungal [Fatal]
  - Atrial fibrillation [Recovering/Resolving]
  - Pleural infection [Not Recovered/Not Resolved]

NARRATIVE: CASE EVENT DATE: 20171113
